FAERS Safety Report 14868846 (Version 1)
Quarter: 2018Q2

REPORT INFORMATION
  Report Type: Spontaneous
  Country: US (occurrence: US)
  Receive Date: 20180423
  Receipt Date: 20180423
  Transmission Date: 20180711
  Serious: Yes (Other)
  Sender: FDA-Public Use
  Company Number: None

PATIENT
  Age: 17 Year
  Sex: Male
  Weight: 64 kg

DRUGS (1)
  1. KYMRIAH [Suspect]
     Active Substance: TISAGENLECLEUCEL
     Dates: start: 20180312, end: 20180312

REACTIONS (4)
  - Fatigue [None]
  - Pyrexia [None]
  - Blood pressure diastolic decreased [None]
  - Myalgia [None]

NARRATIVE: CASE EVENT DATE: 20180317
